FAERS Safety Report 7628864-9 (Version None)
Quarter: 2011Q3

REPORT INFORMATION
  Report Type: 
  Country: None (occurrence: None)
  Receive Date: 20110722
  Receipt Date: 20110523
  Transmission Date: 20111222
  Serious: No
  Sender: FDA-Public Use
  Company Number: US-MYLANLABS-2011S1006274

PATIENT
  Age: 72 Year
  Sex: Female
  Weight: 76.2 kg

DRUGS (3)
  1. VITAMIN TAB [Concomitant]
  2. LIOTHYRONINE SODIUM [Suspect]
     Indication: HYPOTHYROIDISM
     Route: 048
  3. OCUVITE /01053801/ [Concomitant]

REACTIONS (5)
  - ASTHENIA [None]
  - FEELING ABNORMAL [None]
  - DRUG INEFFECTIVE [None]
  - MOOD ALTERED [None]
  - INSOMNIA [None]
